FAERS Safety Report 6963307-X (Version None)
Quarter: 2010Q3

REPORT INFORMATION
  Report Type: 
  Country: None (occurrence: None)
  Receive Date: 20100823
  Receipt Date: 20100602
  Transmission Date: 20110219
  Serious: No
  Sender: FDA-Public Use
  Company Number: 013113

PATIENT
  Sex: Male
  Weight: 78.5 kg

DRUGS (10)
  1. CIMZIA [Suspect]
     Indication: COLITIS ULCERATIVE
     Dosage: (400 MG 1X/MONTH SUBCUTANEOUS)
     Route: 058
     Dates: start: 20090701
  2. PREDNISONE [Concomitant]
  3. ALLOPURINOL [Concomitant]
  4. MULTI-VITAMINS [Concomitant]
  5. ATENOLOL [Concomitant]
  6. RANITIDINE [Concomitant]
  7. PROTONIX [Concomitant]
  8. MESALAMINE [Concomitant]
  9. HYDROCORTISONE ENEMA [Concomitant]
  10. LISINOPRIL [Concomitant]

REACTIONS (4)
  - DIARRHOEA [None]
  - FAECAL INCONTINENCE [None]
  - HAEMATOCHEZIA [None]
  - NEPHROLITHIASIS [None]
